FAERS Safety Report 16827162 (Version 1)
Quarter: 2019Q3

REPORT INFORMATION
  Report Type: Report from Study
  Country: None (occurrence: US)
  Receive Date: 20190919
  Receipt Date: 20190919
  Transmission Date: 20191005
  Serious: Yes (Other)
  Sender: FDA-Public Use
  Company Number: US-ABBVIE-19P-163-2741507-00

PATIENT
  Age: 30 Year
  Sex: Female

DRUGS (1)
  1. ORILISSA [Suspect]
     Active Substance: ELAGOLIX SODIUM
     Indication: PRODUCT USED FOR UNKNOWN INDICATION
     Route: 048

REACTIONS (10)
  - Tooth fracture [Recovered/Resolved]
  - Insomnia [Not Recovered/Not Resolved]
  - Cerebrovascular accident [Unknown]
  - Schizophrenia [Not Recovered/Not Resolved]
  - Amenorrhoea [Not Recovered/Not Resolved]
  - Tooth fracture [Unknown]
  - Menorrhagia [Unknown]
  - Menstruation irregular [Unknown]
  - Epilepsy [Not Recovered/Not Resolved]
  - Pain [Not Recovered/Not Resolved]

NARRATIVE: CASE EVENT DATE: 201907
